FAERS Safety Report 23433701 (Version 1)
Quarter: 2024Q1

REPORT INFORMATION
  Report Type: Spontaneous
  Country: DE (occurrence: DE)
  Receive Date: 20240123
  Receipt Date: 20240123
  Transmission Date: 20240410
  Serious: Yes (Hospitalization)
  Sender: FDA-Public Use
  Company Number: DE-ELI_LILLY_AND_COMPANY-DE202401006984

PATIENT
  Age: 66 Year
  Sex: Female

DRUGS (2)
  1. OLUMIANT [Suspect]
     Active Substance: BARICITINIB
     Indication: Rheumatoid arthritis
     Dosage: 2 MG, UNKNOWN
     Route: 048
     Dates: start: 2021
  2. CORTISONE [Suspect]
     Active Substance: CORTISONE
     Indication: Corneal transplant
     Dosage: 250 MG, TID
     Route: 065

REACTIONS (5)
  - Sepsis [Unknown]
  - Meningitis [Unknown]
  - Spinal cord abscess [Unknown]
  - Aphasia [Unknown]
  - Gait disturbance [Unknown]

NARRATIVE: CASE EVENT DATE: 20230624
